FAERS Safety Report 21598549 (Version 1)
Quarter: 2022Q4

REPORT INFORMATION
  Report Type: Spontaneous
  Country: US (occurrence: US)
  Receive Date: 20221115
  Receipt Date: 20221115
  Transmission Date: 20230112
  Serious: No
  Sender: FDA-Public Use
  Company Number: US-Covis Pharma GmbH-2022COV22187

PATIENT
  Sex: Female

DRUGS (1)
  1. FERAHEME [Suspect]
     Active Substance: FERUMOXYTOL NON-STOICHIOMETRIC MAGNETITE
     Indication: Product used for unknown indication
     Dosage: 100ML
     Route: 042

REACTIONS (1)
  - Infusion site extravasation [Not Recovered/Not Resolved]

NARRATIVE: CASE EVENT DATE: 20221027
